FAERS Safety Report 21400627 (Version 1)
Quarter: 2022Q4

REPORT INFORMATION
  Report Type: Spontaneous
  Country: CA (occurrence: CA)
  Receive Date: 20221003
  Receipt Date: 20221003
  Transmission Date: 20230113
  Serious: Yes (Other)
  Sender: FDA-Public Use
  Company Number: None

PATIENT
  Age: 56 Year
  Sex: Female

DRUGS (1)
  1. PACLITAXEL [Suspect]
     Active Substance: PACLITAXEL
     Indication: Ovarian cancer
     Dosage: INTRAVENOUS INJECTION
     Route: 065

REACTIONS (9)
  - Abdominal pain [Unknown]
  - Back pain [Unknown]
  - Dyspnoea [Unknown]
  - Flushing [Unknown]
  - Hypertension [Unknown]
  - Nausea [Unknown]
  - Pain [Unknown]
  - Pulse absent [Unknown]
  - Unresponsive to stimuli [Unknown]
